FAERS Safety Report 7068278-6 (Version None)
Quarter: 2010Q4

REPORT INFORMATION
  Report Type: 
  Country: None (occurrence: None)
  Receive Date: 20101028
  Receipt Date: 20101018
  Transmission Date: 20110411
  Serious: Yes (Other)
  Sender: FDA-Public Use
  Company Number: US-ROCHE-734932

PATIENT
  Age: 64 Year
  Sex: Female

DRUGS (5)
  1. ALL-TRANS-RETINOIC ACID [Suspect]
     Route: 065
  2. ALL-TRANS-RETINOIC ACID [Suspect]
     Dosage: CONSOLIDATION THERAPY
     Route: 065
     Dates: start: 20061001
  3. DAUNORUBICIN HCL [Suspect]
     Route: 065
  4. DAUNORUBICIN HCL [Suspect]
     Dosage: CONSOLIDATION THERAPY
     Route: 065
     Dates: start: 20061001
  5. DOXORUBICIN [Suspect]
     Route: 065

REACTIONS (2)
  - COLON CANCER [None]
  - RENAL CELL CARCINOMA [None]
